FAERS Safety Report 9660544 (Version 1)
Quarter: 2013Q4

REPORT INFORMATION
  Report Type: Spontaneous
  Country: US (occurrence: US)
  Receive Date: 20131031
  Receipt Date: 20131031
  Transmission Date: 20140711
  Serious: Yes (Other)
  Sender: FDA-Public Use
  Company Number: US-BRISTOL-MYERS SQUIBB COMPANY-19626530

PATIENT
  Age: 85 Year
  Sex: Female
  Weight: 66.21 kg

DRUGS (1)
  1. WARFARIN SODIUM [Suspect]
     Dosage: START: 5 YEARS AGO?DOSAGE: 3 MG OD, COUPLE OF DAYS A WEEK ON 4.5 (UNIT NOT SPECIFIED)

REACTIONS (2)
  - Atrial fibrillation [Unknown]
  - Cardiac valve disease [Unknown]
